FAERS Safety Report 9836102 (Version 1)
Quarter: 2014Q1

REPORT INFORMATION
  Report Type: Spontaneous
  Country: US (occurrence: US)
  Receive Date: 20140123
  Receipt Date: 20140123
  Transmission Date: 20141002
  Serious: No
  Sender: FDA-Public Use
  Company Number: US-009507513-1401USA008963

PATIENT
  Age: 67 Year
  Sex: Female

DRUGS (1)
  1. AZASITE [Suspect]
     Indication: DRY EYE
     Dosage: ONE DROP PER EYE FOR ONE WEEK OUT OF EVERY MONTH
     Route: 047
     Dates: start: 201201

REACTIONS (4)
  - Eye irritation [Not Recovered/Not Resolved]
  - Dry eye [Not Recovered/Not Resolved]
  - Drug dose omission [Unknown]
  - Wrong technique in drug usage process [Unknown]
